FAERS Safety Report 11514802 (Version 3)
Quarter: 2016Q1

REPORT INFORMATION
  Report Type: Report from Study
  Country: US (occurrence: US)
  Receive Date: 20150916
  Receipt Date: 20160224
  Transmission Date: 20160525
  Serious: Yes (Hospitalization, Other)
  Sender: FDA-Public Use
  Company Number: US-B.I. PHARMACEUTICALS,INC./RIDGEFIELD-2015-BI-49856BP

PATIENT
  Sex: Male

DRUGS (1)
  1. OFEV [Suspect]
     Active Substance: NINTEDANIB
     Indication: IDIOPATHIC PULMONARY FIBROSIS
     Dosage: 300 MG
     Route: 048
     Dates: start: 20150910

REACTIONS (10)
  - Diarrhoea [Recovered/Resolved]
  - Arthralgia [Unknown]
  - Weight decreased [Unknown]
  - Wound secretion [Unknown]
  - Lung infection [Unknown]
  - Pruritus generalised [Unknown]
  - Herpes zoster [Unknown]
  - Alopecia [Unknown]
  - Gastrointestinal perforation [Unknown]
  - Dysgeusia [Unknown]
